FAERS Safety Report 4516899-4 (Version None)
Quarter: 2005Q1

REPORT INFORMATION
  Report Type: 
  Country: None (occurrence: None)
  Receive Date: 20041029
  Receipt Date: 20040824
  Transmission Date: 20050727
  Serious: No
  Sender: FDA-Public Use
  Company Number: 2004-120342-NL

PATIENT
  Age: 45 Year
  Sex: Male
  Weight: 88.5 kg

DRUGS (1)
  1. NUVARING [Suspect]
     Dates: start: 20040813

REACTIONS (3)
  - DYSPAREUNIA [None]
  - MEDICAL DEVICE DISCOMFORT [None]
  - PENIS DISORDER [None]
